FAERS Safety Report 6707427-3 (Version None)
Quarter: 2010Q2

REPORT INFORMATION
  Report Type: 
  Country: None (occurrence: None)
  Receive Date: 20100503
  Receipt Date: 20091106
  Transmission Date: 20101027
  Serious: No
  Sender: FDA-Public Use
  Company Number: US-ASTRAZENECA-2009SE24974

PATIENT
  Age: 65 Year
  Sex: Female
  Weight: 60.3 kg

DRUGS (4)
  1. NEXIUM [Suspect]
     Route: 048
  2. PRILOSEC DELAYED-ORAL SUSPENSION [Suspect]
     Route: 048
  3. BISPROLOL [Concomitant]
  4. KLONOPIN [Concomitant]

REACTIONS (5)
  - COUGH [None]
  - INFLUENZA LIKE ILLNESS [None]
  - INSOMNIA [None]
  - NAUSEA [None]
  - POSTNASAL DRIP [None]
